FAERS Safety Report 24765906 (Version 3)
Quarter: 2025Q1

REPORT INFORMATION
  Report Type: Spontaneous
  Country: GB (occurrence: GB)
  Receive Date: 20241223
  Receipt Date: 20250220
  Transmission Date: 20250409
  Serious: Yes (Death)
  Sender: MYLAN
  Company Number: GB-MYLANLABS-2024M1115538

PATIENT
  Age: 79 Year
  Sex: Female

DRUGS (14)
  1. CLOZARIL [Suspect]
     Active Substance: CLOZAPINE
     Indication: Schizophrenia
     Dosage: 175 MILLIGRAM, QD (ONCE DAILY)
     Route: 048
     Dates: start: 20090630, end: 20241216
  2. SULPIRIDE [Concomitant]
     Active Substance: SULPIRIDE
     Indication: Schizophrenia
     Dosage: 200 MILLIGRAM, QD (ONCE DAILY)
     Route: 048
     Dates: start: 20150812, end: 20241216
  3. SCOPOLAMINE HYDROBROMIDE [Concomitant]
     Active Substance: SCOPOLAMINE HYDROBROMIDE
     Indication: Salivary hypersecretion
     Dosage: 300 MICROGRAM, TID (TDS)
     Route: 048
     Dates: start: 20240510, end: 20241216
  4. LACTULOSE [Concomitant]
     Active Substance: LACTULOSE
     Indication: Constipation
     Dosage: 15 MILLILITER, BID (BD)
     Route: 048
     Dates: start: 20221013, end: 20241216
  5. POLYETHYLENE GLYCOL 3350\POTASSIUM CHLORIDE\SODIUM BICARBONATE\SODIUM [Concomitant]
     Active Substance: POLYETHYLENE GLYCOL 3350\POTASSIUM CHLORIDE\SODIUM BICARBONATE\SODIUM CHLORIDE
     Indication: Constipation
     Dosage: 1 DOSAGE FORM, AM (1 SACHET OM)
     Route: 048
     Dates: start: 20240621, end: 20241216
  6. OMEPRAZOLE [Concomitant]
     Active Substance: OMEPRAZOLE
     Indication: Gastrointestinal disorder
     Dosage: 20 MILLIGRAM, BID (BD)
     Route: 048
     Dates: start: 20150812, end: 20241216
  7. ACETAMINOPHEN [Concomitant]
     Active Substance: ACETAMINOPHEN
     Indication: Pain
     Dosage: 1000 MILLIGRAM, QID (QDS)
     Route: 048
     Dates: start: 20240621, end: 20241101
  8. SIMVASTATIN [Concomitant]
     Active Substance: SIMVASTATIN
     Indication: Hypercholesterolaemia
     Dosage: 20 MILLIGRAM, PM (ON)
     Route: 048
     Dates: start: 20150812, end: 20241101
  9. MORPHINE [Concomitant]
     Active Substance: MORPHINE
     Route: 048
  10. MORPHINE [Concomitant]
     Active Substance: MORPHINE
     Route: 058
  11. LEVOMEPROMAZINE [Concomitant]
     Active Substance: LEVOMEPROMAZINE
     Route: 058
  12. LORAZEPAM [Concomitant]
     Active Substance: LORAZEPAM
     Route: 058
  13. MIDAZOLAM [Concomitant]
     Active Substance: MIDAZOLAM
     Route: 058
  14. BUTYLSCOPOLAMINE BROMIDE [Concomitant]
     Active Substance: BUTYLSCOPOLAMINE BROMIDE
     Route: 058

REACTIONS (2)
  - Atrioventricular block [Fatal]
  - Bradycardia [Fatal]

NARRATIVE: CASE EVENT DATE: 20241101
